FAERS Safety Report 9256758 (Version 1)
Quarter: 2013Q2

REPORT INFORMATION
  Report Type: Spontaneous
  Country: US (occurrence: US)
  Receive Date: 20130426
  Receipt Date: 20130426
  Transmission Date: 20140414
  Serious: No
  Sender: FDA-Public Use
  Company Number: US-ASTRAZENECA-2013SE23802

PATIENT
  Sex: Female

DRUGS (1)
  1. RHINOCORT AQUA [Suspect]
     Indication: HYPERSENSITIVITY
     Route: 045

REACTIONS (2)
  - Exposure during pregnancy [Unknown]
  - Hypersensitivity [Unknown]
